FAERS Safety Report 5574646-1 (Version None)
Quarter: 2007Q4

REPORT INFORMATION
  Report Type: 
  Country: None (occurrence: None)
  Receive Date: 20071226
  Receipt Date: 20071226
  Transmission Date: 20080405
  Serious: Yes (Other)
  Sender: FDA-Public Use
  Company Number: None

PATIENT
  Age: 66 Year
  Sex: Male
  Weight: 99.7913 kg

DRUGS (1)
  1. AMLODIPINE [Suspect]
     Indication: HYPERTENSION
     Dosage: 1  DAILY  PO
     Route: 048
     Dates: start: 20070510, end: 20071018

REACTIONS (4)
  - GINGIVAL BLEEDING [None]
  - HEART RATE IRREGULAR [None]
  - NOCTURIA [None]
  - OEDEMA PERIPHERAL [None]
